FAERS Safety Report 8197007-8 (Version None)
Quarter: 2012Q1

REPORT INFORMATION
  Report Type: 
  Country: None (occurrence: None)
  Receive Date: 20120309
  Receipt Date: 20120229
  Transmission Date: 20120608
  Serious: Yes (Other)
  Sender: FDA-Public Use
  Company Number: IN-GE HEALTHCARE MEDICAL DIAGNOSTICS-OMPQ-NO-1203S-0250

PATIENT
  Age: 55 Year
  Sex: Female
  Weight: 73 kg

DRUGS (4)
  1. UNSPECIFIED ANTIHISTIAMIC PRODUCT [Concomitant]
  2. HYDROCORTISONE [Concomitant]
  3. UNSPECIFIED NSAID PRODUCT [Concomitant]
  4. OMNIPAQUE 140 [Suspect]
     Indication: PRODUCT USED FOR UNKNOWN INDICATION
     Route: 042
     Dates: start: 20111215, end: 20111215

REACTIONS (6)
  - ABDOMINAL PAIN [None]
  - CHILLS [None]
  - PANCREATITIS [None]
  - PROCALCITONIN INCREASED [None]
  - MUSCLE SPASMS [None]
  - BACK PAIN [None]
